FAERS Safety Report 8072924-8 (Version None)
Quarter: 2012Q1

REPORT INFORMATION
  Report Type: 
  Country: None (occurrence: None)
  Receive Date: 20120126
  Receipt Date: 20120121
  Transmission Date: 20120608
  Serious: Yes (Other)
  Sender: FDA-Public Use
  Company Number: US-PFIZER INC-2012017481

PATIENT
  Sex: Female
  Weight: 70.295 kg

DRUGS (3)
  1. LYRICA [Suspect]
     Indication: FIBROMYALGIA
     Dosage: 100 MG, 1X/DAY
     Route: 048
     Dates: start: 20080101
  2. NEXIUM [Concomitant]
     Dosage: UNK
  3. OXYCONTIN [Concomitant]
     Indication: NERVE COMPRESSION
     Dosage: UNK

REACTIONS (5)
  - OEDEMA PERIPHERAL [None]
  - HYPOKINESIA [None]
  - TENDERNESS [None]
  - JOINT SWELLING [None]
  - PAIN IN EXTREMITY [None]
